FAERS Safety Report 4313997-5 (Version None)
Quarter: 2004Q1

REPORT INFORMATION
  Report Type: 
  Country: None (occurrence: None)
  Receive Date: 20040309
  Receipt Date: 20040224
  Transmission Date: 20041129
  Serious: Yes (Other)
  Sender: FDA-Public Use
  Company Number: PHHO2004GB02897

PATIENT
  Age: 54 Year
  Sex: Female
  Weight: 66 kg

DRUGS (3)
  1. CGS 20267 [Suspect]
     Indication: BREAST CANCER
     Dosage: 2.5 MG, QD
     Route: 048
     Dates: start: 20040127
  2. ZOLEDRONATE [Suspect]
     Indication: BREAST CANCER
     Route: 042
     Dates: start: 20040127
  3. CALCICHEW-D3 [Concomitant]
     Indication: HYPOCALCAEMIA

REACTIONS (5)
  - EYE PAIN [None]
  - EYE REDNESS [None]
  - INFLUENZA LIKE ILLNESS [None]
  - IRITIS [None]
  - MYALGIA [None]
